FAERS Safety Report 20929993 (Version 2)
Quarter: 2022Q2

REPORT INFORMATION
  Report Type: Other
  Country: DE (occurrence: DE)
  Receive Date: 20220608
  Receipt Date: 20220614
  Transmission Date: 20220721
  Serious: Yes (Other)
  Sender: FDA-Public Use
  Company Number: DE-ROCHE-3099716

PATIENT
  Age: 8 Year
  Sex: Male

DRUGS (2)
  1. RITUXIMAB [Suspect]
     Active Substance: RITUXIMAB
     Indication: Factor XIII deficiency
     Route: 065
  2. MYCOPHENOLATE MOFETIL [Concomitant]
     Active Substance: MYCOPHENOLATE MOFETIL
     Indication: Factor XIII deficiency

REACTIONS (4)
  - Leukopenia [Unknown]
  - Neutropenia [Unknown]
  - Off label use [Unknown]
  - Off label use [Unknown]
